FAERS Safety Report 14672033 (Version 13)
Quarter: 2022Q2

REPORT INFORMATION
  Report Type: Spontaneous
  Country: GB (occurrence: GB)
  Receive Date: 20180323
  Receipt Date: 20220520
  Transmission Date: 20220721
  Serious: Yes (Other)
  Sender: FDA-Public Use
  Company Number: GB-EMA-DD-20180219-TANEJAEVHP-125750

PATIENT
  Age: 61 Year
  Sex: Female
  Weight: 60.1 kg

DRUGS (26)
  1. CITALOPRAM [Suspect]
     Active Substance: CITALOPRAM HYDROBROMIDE
     Indication: Product used for unknown indication
     Dosage: 30 MILLIGRAM, DAILY
     Route: 048
  2. CITALOPRAM [Suspect]
     Active Substance: CITALOPRAM HYDROBROMIDE
     Dosage: 30 MILLIGRAM, UNK
     Route: 048
  3. PIRENZEPINE [Suspect]
     Active Substance: PIRENZEPINE
     Indication: Product used for unknown indication
     Dosage: 50 MG, BID
     Route: 048
  4. PIRENZEPINE [Suspect]
     Active Substance: PIRENZEPINE
     Dosage: 600 MILLIGRAM, DAILY, QD
     Route: 048
  5. PIRENZEPINE [Suspect]
     Active Substance: PIRENZEPINE
     Dosage: 800 MILLIGRAM, DAILY, 200 MG, BID
     Route: 048
  6. PIRENZEPINE [Suspect]
     Active Substance: PIRENZEPINE
     Dosage: 50 MILLIGRAM, BID, 50 MG, BID
     Route: 048
  7. PIRENZEPINE [Suspect]
     Active Substance: PIRENZEPINE
     Dosage: 100 MILLIGRAM DAILY; 50 MG, BID
     Route: 048
  8. VALPROATE [Suspect]
     Active Substance: VALPROIC ACID
     Indication: Product used for unknown indication
     Dosage: 600 MG, QD
     Route: 048
  9. VALPROATE [Suspect]
     Active Substance: VALPROIC ACID
     Dosage: 600 MG, BID
     Route: 048
  10. VALPROATE [Suspect]
     Active Substance: VALPROIC ACID
     Dosage: UNK
     Route: 048
  11. VALPROATE [Suspect]
     Active Substance: VALPROIC ACID
     Dosage: 600 MG, BID
     Route: 048
  12. VALPROATE [Suspect]
     Active Substance: VALPROIC ACID
     Dosage: 600 MG, BID
     Route: 048
  13. LORAZEPAM [Suspect]
     Active Substance: LORAZEPAM
     Indication: Product used for unknown indication
     Dosage: 1 MG, PRN, AS NECESSARY
     Route: 048
  14. LORAZEPAM [Suspect]
     Active Substance: LORAZEPAM
     Dosage: 1 MILLIGRAM, AS NECESSARY
     Route: 048
  15. LORAZEPAM [Suspect]
     Active Substance: LORAZEPAM
     Dosage: 50 MILLIGRAM, BID
     Route: 048
  16. LORAZEPAM [Suspect]
     Active Substance: LORAZEPAM
     Dosage: UNK MILLIGRAM
     Route: 048
  17. CLOZARIL [Suspect]
     Active Substance: CLOZAPINE
     Indication: Product used for unknown indication
     Dosage: 200 MG, BID
     Route: 048
     Dates: start: 20030116
  18. CLOZARIL [Suspect]
     Active Substance: CLOZAPINE
     Indication: Schizophrenia
     Dosage: 400 MG, QD (PM)
     Route: 048
     Dates: start: 20030116
  19. CLOZARIL [Suspect]
     Active Substance: CLOZAPINE
     Dosage: 400 MILLIGRAM, DAILY, 200 MG, BID
     Route: 048
  20. AMISULPRIDE [Suspect]
     Active Substance: AMISULPRIDE
     Indication: Product used for unknown indication
     Dosage: 200 MG, BID
     Route: 048
  21. AMISULPRIDE [Suspect]
     Active Substance: AMISULPRIDE
     Dosage: 200 MG, BID
     Route: 048
  22. AMISULPRIDE [Suspect]
     Active Substance: AMISULPRIDE
     Dosage: 200 MG, BID
     Route: 048
  23. AMISULPRIDE [Suspect]
     Active Substance: AMISULPRIDE
     Dosage: 800 MILLIGRAM, DAILY, 200 MG, BID
     Route: 048
  24. VALPROATE SODIUM [Suspect]
     Active Substance: VALPROATE SODIUM
     Indication: Product used for unknown indication
  25. CLONAZEPAM [Suspect]
     Active Substance: CLONAZEPAM
     Indication: Schizophrenia
     Dosage: 400 MILLIGRAM, DAILY
     Route: 048
     Dates: start: 20030116
  26. CLONAZEPAM [Suspect]
     Active Substance: CLONAZEPAM
     Dosage: 200 MILLIGRAM, BID
     Route: 048
     Dates: start: 20030116

REACTIONS (2)
  - Differential white blood cell count abnormal [Recovering/Resolving]
  - Neutrophil count abnormal [Recovering/Resolving]

NARRATIVE: CASE EVENT DATE: 20170118
